FAERS Safety Report 20805331 (Version 1)
Quarter: 2022Q2

REPORT INFORMATION
  Report Type: Spontaneous
  Country: ES (occurrence: ES)
  Receive Date: 20220509
  Receipt Date: 20220509
  Transmission Date: 20220721
  Serious: Yes (Hospitalization)
  Sender: FDA-Public Use
  Company Number: ES-STRIDES ARCOLAB LIMITED-2022SP005030

PATIENT
  Age: 66 Year
  Sex: Female

DRUGS (6)
  1. CYCLOSPORINE [Suspect]
     Active Substance: CYCLOSPORINE
     Indication: Steal syndrome
     Dosage: UNK
     Route: 065
  2. MYCOPHENOLATE MOFETIL [Suspect]
     Active Substance: MYCOPHENOLATE MOFETIL
     Indication: Liver transplant
     Dosage: UNK
     Route: 065
  3. COTRIMOXAZOLE [Concomitant]
     Active Substance: SULFAMETHOXAZOLE\TRIMETHOPRIM
     Indication: Stenotrophomonas infection
     Dosage: UNK
     Route: 065
  4. COTRIMOXAZOLE [Concomitant]
     Active Substance: SULFAMETHOXAZOLE\TRIMETHOPRIM
     Indication: Cytomegalovirus infection
     Dosage: UNK
     Route: 065
  5. TIGECYCLINE [Concomitant]
     Active Substance: TIGECYCLINE
     Indication: Stenotrophomonas infection
     Dosage: UNK
     Route: 065
  6. BASILIXIMAB [Concomitant]
     Active Substance: BASILIXIMAB
     Indication: Stenotrophomonas infection
     Dosage: UNK
     Route: 065

REACTIONS (9)
  - Multiple organ dysfunction syndrome [Unknown]
  - Nervous system disorder [Unknown]
  - Cytomegalovirus infection [Unknown]
  - Cellulitis [Unknown]
  - Herpes virus infection [Unknown]
  - Pseudomonas infection [Unknown]
  - Candida infection [Unknown]
  - Strongyloidiasis [Unknown]
  - Off label use [Unknown]
